FAERS Safety Report 4329801-5 (Version None)
Quarter: 2004Q1

REPORT INFORMATION
  Report Type: 
  Country: None (occurrence: None)
  Receive Date: 20040329
  Receipt Date: 20040316
  Transmission Date: 20041129
  Serious: Yes (Hospitalization, Other)
  Sender: FDA-Public Use
  Company Number: AUS044201

PATIENT
  Age: 36 Year
  Sex: Male

DRUGS (5)
  1. ARANESP [Suspect]
     Indication: RENAL FAILURE CHRONIC
     Dosage: 20 MCG, WEEKLY, SC
     Route: 058
     Dates: start: 20030226, end: 20030729
  2. ERYTHROPOIETIN HUMAN [Suspect]
     Dosage: 4000 U, TWICE WEEKLY
     Dates: start: 20021024, end: 20030213
  3. CALCIUM CARBONATE [Concomitant]
  4. FELODIPINE [Concomitant]
  5. ATENOLOL [Concomitant]

REACTIONS (6)
  - ANAEMIA [None]
  - ANTI-ERYTHROPOIETIN ANTIBODY POSITIVE [None]
  - APLASIA PURE RED CELL [None]
  - AZOTAEMIA [None]
  - BLOOD ALBUMIN DECREASED [None]
  - TREATMENT NONCOMPLIANCE [None]
